FAERS Safety Report 5914550-X (Version None)
Quarter: 2008Q4

REPORT INFORMATION
  Report Type: 
  Country: None (occurrence: None)
  Receive Date: 20081008
  Receipt Date: 20080929
  Transmission Date: 20090506
  Serious: Yes (Hospitalization)
  Sender: FDA-Public Use
  Company Number: CIP08001980

PATIENT
  Sex: Female

DRUGS (1)
  1. ACTONEL [Suspect]
     Dosage: ORAL
     Route: 048
     Dates: start: 20060101, end: 20080201

REACTIONS (4)
  - ERYTHEMA [None]
  - MALAISE [None]
  - OEDEMA PERIPHERAL [None]
  - THROMBOSIS [None]
